FAERS Safety Report 10822041 (Version 1)
Quarter: 2015Q1

REPORT INFORMATION
  Report Type: Spontaneous
  Country: US (occurrence: None)
  Receive Date: 20150213
  Receipt Date: 20150213
  Transmission Date: 20150721
  Serious: Yes (Hospitalization)
  Sender: FDA-Public Use
  Company Number: US-2015VAL000110

PATIENT
  Age: 73 Year
  Sex: Female

DRUGS (15)
  1. LEVOTHYROXINE [Concomitant]
     Active Substance: LEVOTHYROXINE
  2. LORCASERIN (BLINDED) [Suspect]
     Active Substance: LORCASERIN HYDROCHLORIDE
     Indication: WEIGHT CONTROL
     Route: 048
     Dates: start: 20141111
  3. GABAPENTIN. [Concomitant]
     Active Substance: GABAPENTIN
  4. GLIPIZIDE (GLIPIZIDE) [Concomitant]
     Active Substance: GLIPIZIDE
  5. POTASSIUM [Concomitant]
     Active Substance: POTASSIUM
  6. LASIX [Concomitant]
     Active Substance: FUROSEMIDE
  7. METFORMIN [Concomitant]
     Active Substance: METFORMIN HYDROCHLORIDE
  8. ALBUTEROL (SALBUTAMOL) [Concomitant]
     Active Substance: ALBUTEROL
  9. IPRATROPIUM [Concomitant]
     Active Substance: IPRATROPIUM
  10. BENICAR HCT [Concomitant]
     Active Substance: HYDROCHLOROTHIAZIDE\OLMESARTAN MEDOXOMIL
  11. DILTIAZEM [Concomitant]
     Active Substance: DILTIAZEM
  12. LIPITOT (ATOVASTATIN CALCIUM) [Concomitant]
  13. LEVALBUTEROL (LEVOSALBUTAMOL) [Concomitant]
  14. METOPROLOL TARTRATE. [Suspect]
     Active Substance: METOPROLOL TARTRATE
     Indication: CARDIOVASCULAR DISORDER
     Route: 048
     Dates: start: 20140606, end: 20141215
  15. LORATADINE. [Concomitant]
     Active Substance: LORATADINE

REACTIONS (6)
  - Heart rate increased [None]
  - Nausea [None]
  - Atrial fibrillation [None]
  - Vomiting [None]
  - Dizziness [None]
  - Asthenia [None]

NARRATIVE: CASE EVENT DATE: 20141218
